FAERS Safety Report 4699717-3 (Version None)
Quarter: 2005Q2

REPORT INFORMATION
  Report Type: 
  Country: None (occurrence: None)
  Receive Date: 20050623
  Receipt Date: 20050607
  Transmission Date: 20051028
  Serious: Yes (Other)
  Sender: FDA-Public Use
  Company Number: DSA_26636_2005

PATIENT
  Age: 81 Year
  Sex: Female

DRUGS (10)
  1. CARDIZEM [Suspect]
     Dosage: 240 MG Q DAY PO
     Route: 048
     Dates: end: 19990222
  2. ARATAC [Suspect]
     Dosage: 200 MG Q DAY PO
     Route: 048
     Dates: end: 19990223
  3. PRAVACHOL [Suspect]
     Dosage: 10 MG Q DAY PO
     Route: 048
     Dates: end: 19990225
  4. TRYPTANOL     /AUS/ [Suspect]
     Dosage: 25 MG Q DAY PO
     Route: 048
     Dates: end: 19990224
  5. SLOW-K [Suspect]
     Dosage: 3 DF PO
     Route: 048
     Dates: end: 19990223
  6. NITRODERM [Concomitant]
  7. ZANTAC [Concomitant]
  8. VENTOLIN [Concomitant]
  9. BECOTIDE [Concomitant]
  10. LASIX [Concomitant]

REACTIONS (2)
  - HEPATOCELLULAR DAMAGE [None]
  - PROTHROMBIN LEVEL DECREASED [None]
